FAERS Safety Report 21107609 (Version 1)
Quarter: 2022Q3

REPORT INFORMATION
  Report Type: Spontaneous
  Country: US (occurrence: None)
  Receive Date: 20220720
  Receipt Date: 20220720
  Transmission Date: 20221027
  Serious: Yes (Hospitalization)
  Sender: FDA-Public Use
  Company Number: None

PATIENT
  Sex: Female

DRUGS (13)
  1. PROAIR HFA [Suspect]
     Active Substance: ALBUTEROL SULFATE
     Indication: Infective pulmonary exacerbation of cystic fibrosis
     Dosage: 108 MCG/ACT ?INHALE 2 PUFFS BY MOUTH EVERY 12 HOURS PRIOR TO AIRWAY CLEARANCE, THEN EVERY  4 HOURS A
     Route: 055
     Dates: start: 20220408
  2. ALBUTEROL SULFATE [Concomitant]
     Active Substance: ALBUTEROL SULFATE
  3. AZELASTINE HYDROCHLORIDE [Concomitant]
     Active Substance: AZELASTINE HYDROCHLORIDE
  4. CREON [Concomitant]
     Active Substance: PANCRELIPASE AMYLASE\PANCRELIPASE LIPASE\PANCRELIPASE PROTEASE
  5. CYPROHEPTADINE HYDROCHLORIDE [Concomitant]
     Active Substance: CYPROHEPTADINE HYDROCHLORIDE
  6. FLUTICASONE [Concomitant]
  7. Neo/Poly/HC Sus [Concomitant]
  8. POLYETHYLENE GLYCOL [Concomitant]
     Active Substance: POLYETHYLENE GLYCOL
  9. PROAIR HFA [Concomitant]
     Active Substance: ALBUTEROL SULFATE
  10. Pulmozyme Sol [Concomitant]
  11. Sinus Rinse Pow Refill [Concomitant]
  12. Sodium Chlor Neb [Concomitant]
  13. URSODIOL [Concomitant]
     Active Substance: URSODIOL

REACTIONS (1)
  - Dyspnoea [None]
